FAERS Safety Report 19901251 (Version 2)
Quarter: 2021Q4

REPORT INFORMATION
  Report Type: Spontaneous
  Country: US (occurrence: US)
  Receive Date: 20210930
  Receipt Date: 20211011
  Transmission Date: 20220303
  Serious: Yes (Death, Hospitalization, Other)
  Sender: FDA-Public Use
  Company Number: US-GLENMARK PHARMACEUTICALS-2021GMK068091

PATIENT
  Age: 55 Year
  Sex: Male

DRUGS (1)
  1. VERAPAMIL [Suspect]
     Active Substance: VERAPAMIL HYDROCHLORIDE
     Indication: Suicidal ideation
     Dosage: 14400 MILLIGRAM (80 TABLETS OF 180 MG SUSTAINED-RELEASE VERAPAMIL)
     Route: 048

REACTIONS (13)
  - Intentional overdose [Fatal]
  - Toxicity to various agents [Fatal]
  - Atrioventricular dissociation [Fatal]
  - Hypotension [Fatal]
  - Rhythm idioventricular [Fatal]
  - Bradycardia [Fatal]
  - Respiratory failure [Fatal]
  - Shock [Fatal]
  - Cardio-respiratory arrest [Fatal]
  - Suicidal ideation [None]
  - Dizziness [Unknown]
  - Headache [Unknown]
  - Blood glucose increased [Unknown]
